FAERS Safety Report 10338469 (Version 2)
Quarter: 2014Q3

REPORT INFORMATION
  Report Type: Spontaneous
  Country: US (occurrence: US)
  Receive Date: 20140724
  Receipt Date: 20140724
  Transmission Date: 20150326
  Serious: Yes (Other)
  Sender: FDA-Public Use
  Company Number: US-GLAXOSMITHKLINE-A0862109A

PATIENT
  Age: 60 Year
  Sex: Female
  Weight: 105.9 kg

DRUGS (6)
  1. AVANDIA [Suspect]
     Active Substance: ROSIGLITAZONE MALEATE
     Indication: DIABETES MELLITUS
     Dosage: 8MG PER DAY
     Route: 048
     Dates: end: 20070706
  2. ALTACE [Concomitant]
     Active Substance: RAMIPRIL
  3. LISINOPRIL. [Concomitant]
     Active Substance: LISINOPRIL
  4. GLYBURIDE. [Concomitant]
     Active Substance: GLYBURIDE
  5. ATENOLOL. [Concomitant]
     Active Substance: ATENOLOL
  6. CADUET [Concomitant]
     Active Substance: AMLODIPINE BESYLATE\ATORVASTATIN CALCIUM

REACTIONS (1)
  - Cardiac failure congestive [Not Recovered/Not Resolved]

NARRATIVE: CASE EVENT DATE: 20070524
